FAERS Safety Report 21883258 (Version 10)
Quarter: 2024Q4

REPORT INFORMATION
  Report Type: Report from Study
  Country: BE (occurrence: BE)
  Receive Date: 20230119
  Receipt Date: 20241129
  Transmission Date: 20250115
  Serious: Yes (Hospitalization)
  Sender: ROCHE
  Company Number: BE-ROCHE-3264303

PATIENT
  Age: 49 Year
  Sex: Female
  Weight: 74.2 kg

DRUGS (26)
  1. OCRELIZUMAB [Suspect]
     Active Substance: OCRELIZUMAB
     Indication: Relapsing-remitting multiple sclerosis
     Route: 042
     Dates: start: 20190711, end: 20190711
  2. OCRELIZUMAB [Suspect]
     Active Substance: OCRELIZUMAB
     Route: 042
     Dates: start: 20200804, end: 20200818
  3. OCRELIZUMAB [Suspect]
     Active Substance: OCRELIZUMAB
     Route: 042
     Dates: start: 20220708, end: 20220708
  4. OCRELIZUMAB [Suspect]
     Active Substance: OCRELIZUMAB
     Route: 042
     Dates: start: 20210820, end: 20210820
  5. OCRELIZUMAB [Suspect]
     Active Substance: OCRELIZUMAB
     Route: 042
     Dates: start: 20190730, end: 20190730
  6. OCRELIZUMAB [Suspect]
     Active Substance: OCRELIZUMAB
     Route: 042
     Dates: start: 20210511, end: 20210511
  7. OCRELIZUMAB [Suspect]
     Active Substance: OCRELIZUMAB
     Route: 042
  8. ESOMEPRAZOLE [Concomitant]
     Active Substance: ESOMEPRAZOLE
     Route: 048
  9. PRIMPERAN [Concomitant]
     Active Substance: METOCLOPRAMIDE HYDROCHLORIDE
     Route: 048
     Dates: start: 201906
  10. CHOLECALCIFEROL [Concomitant]
     Active Substance: CHOLECALCIFEROL
     Dosage: 1  AMPULE
     Route: 048
     Dates: start: 201005
  11. D-VITAL [Concomitant]
     Route: 048
     Dates: start: 201905
  12. ZOCOR [Concomitant]
     Active Substance: SIMVASTATIN
     Route: 048
     Dates: start: 201102
  13. DESO 30 [Concomitant]
     Dosage: 1 TABLET
     Route: 048
     Dates: start: 201805, end: 20221228
  14. CONTRAMAL RETARD [Concomitant]
     Route: 048
     Dates: start: 201107
  15. LORMETAZEPAM [Concomitant]
     Active Substance: LORMETAZEPAM
     Route: 048
     Dates: start: 200801
  16. ZIVEREL [Concomitant]
     Route: 048
     Dates: start: 201906
  17. IRON DEXTRAN [Concomitant]
     Active Substance: IRON DEXTRAN
     Route: 030
     Dates: start: 201906
  18. OMEPRAZOLE [Concomitant]
     Active Substance: OMEPRAZOLE
     Route: 048
     Dates: start: 20200703
  19. RIOPAN (BELGIUM) [Concomitant]
     Dosage: 1 OTHER
     Route: 048
     Dates: start: 20200703
  20. SOLIFENACIN [Concomitant]
     Active Substance: SOLIFENACIN
     Route: 048
     Dates: start: 20200929
  21. IBUPROFEN [Concomitant]
     Active Substance: IBUPROFEN
     Route: 048
     Dates: start: 20221216, end: 20221220
  22. AMOXICILLIN\CLAVULANATE POTASSIUM [Concomitant]
     Active Substance: AMOXICILLIN\CLAVULANATE POTASSIUM
     Route: 048
     Dates: start: 20221221, end: 20221226
  23. ENOXAPARIN SODIUM [Concomitant]
     Active Substance: ENOXAPARIN SODIUM
     Route: 058
     Dates: start: 20221228, end: 20230101
  24. PRADAXA [Concomitant]
     Active Substance: DABIGATRAN ETEXILATE MESYLATE
     Route: 048
     Dates: start: 20230101
  25. CYANOCOBALAMIN\FOLIC ACID\PYRIDOXINE HYDROCHLORIDE [Concomitant]
     Active Substance: CYANOCOBALAMIN\FOLIC ACID\PYRIDOXINE HYDROCHLORIDE
     Dosage: 1 TABLET
     Route: 048
     Dates: start: 202212
  26. LEVOFLOXACIN [Concomitant]
     Active Substance: LEVOFLOXACIN
     Route: 048
     Dates: start: 20230104

REACTIONS (5)
  - C-reactive protein increased [Recovered/Resolved]
  - Vitamin B12 decreased [Recovering/Resolving]
  - COVID-19 [Recovered/Resolved]
  - Cerebral venous sinus thrombosis [Recovering/Resolving]
  - Blood folate decreased [Recovering/Resolving]

NARRATIVE: CASE EVENT DATE: 20221206
